FAERS Safety Report 5324242-6 (Version None)
Quarter: 2007Q2

REPORT INFORMATION
  Report Type: 
  Country: None (occurrence: None)
  Receive Date: 20070508
  Receipt Date: 20070423
  Transmission Date: 20071010
  Serious: Yes (Death, Hospitalization)
  Sender: FDA-Public Use
  Company Number: 2007000528

PATIENT
  Age: 54 Year
  Sex: Male

DRUGS (8)
  1. ERLOTINIB (TABLET) [Suspect]
     Indication: HEPATIC NEOPLASM MALIGNANT
     Dosage: 150 MG (QD), ORAL
     Route: 048
     Dates: start: 20070307
  2. BEVACIZUMAB (INJECTION FOR INFUSION) [Suspect]
     Indication: HEPATIC NEOPLASM MALIGNANT
     Dosage: 10 MG/KG (Q2W), INTRAVENOUS
     Route: 042
     Dates: start: 20070221
  3. MARINOL [Concomitant]
  4. ATENOLOL [Concomitant]
  5. NEXIUM [Concomitant]
  6. SENOKOT [Concomitant]
  7. FENTANYL PATCH (FENTANYL CITRATE) [Concomitant]
  8. ACTIQ [Concomitant]

REACTIONS (8)
  - ACTIVITIES OF DAILY LIVING IMPAIRED [None]
  - ANOREXIA [None]
  - DISEASE PROGRESSION [None]
  - FAILURE TO THRIVE [None]
  - HALLUCINATION [None]
  - HEPATOMEGALY [None]
  - METASTASES TO LIVER [None]
  - PERFORMANCE STATUS DECREASED [None]
